FAERS Safety Report 7104328-6 (Version None)
Quarter: 2010Q4

REPORT INFORMATION
  Report Type: 
  Country: None (occurrence: None)
  Receive Date: 20101115
  Receipt Date: 20100624
  Transmission Date: 20110411
  Serious: No
  Sender: FDA-Public Use
  Company Number: US-ALLERGAN-1008305US

PATIENT
  Age: 45 Year
  Sex: Female

DRUGS (4)
  1. BOTOX COSMETIC [Suspect]
     Indication: SKIN WRINKLING
     Dosage: UNK
     Route: 030
  2. BOTOX COSMETIC [Suspect]
     Dosage: UNK
     Route: 030
  3. RESTYLANE [Concomitant]
  4. VALTREX [Concomitant]
     Indication: HERPES VIRUS INFECTION

REACTIONS (3)
  - DRUG INEFFECTIVE [None]
  - LIP SWELLING [None]
  - PRURITUS [None]
